FAERS Safety Report 23919464 (Version 1)
Quarter: 2024Q2

REPORT INFORMATION
  Report Type: Spontaneous
  Country: US (occurrence: None)
  Receive Date: 20240529
  Receipt Date: 20240529
  Transmission Date: 20240716
  Serious: Yes (unspecified)
  Sender: FDA-Public Use
  Company Number: None

PATIENT
  Age: 62 Year
  Sex: Female

DRUGS (1)
  1. IBRANCE [Suspect]
     Active Substance: PALBOCICLIB
     Indication: Breast cancer female
     Dosage: 125MG QD FOR 21 DAYS THEN 7 DAYS OFF  ORAL;?
     Route: 048

REACTIONS (3)
  - White blood cell count decreased [None]
  - Blood creatinine increased [None]
  - Therapy change [None]
